FAERS Safety Report 5476055-2 (Version None)
Quarter: 2007Q3

REPORT INFORMATION
  Report Type: 
  Country: None (occurrence: None)
  Receive Date: 20070904
  Receipt Date: 20060818
  Transmission Date: 20080115
  Serious: Yes (Other)
  Sender: FDA-Public Use
  Company Number: 147212USA

PATIENT
  Sex: Female

DRUGS (2)
  1. METOCLOPRAMIDE [Suspect]
     Indication: GASTRITIS
     Dates: start: 19990824, end: 20030922
  2. METOCLOPRAMIDE [Suspect]
     Indication: GASTROOESOPHAGEAL REFLUX DISEASE
     Dates: start: 19990824, end: 20030922

REACTIONS (6)
  - BRUXISM [None]
  - CONDITION AGGRAVATED [None]
  - DYSKINESIA [None]
  - MUSCLE TWITCHING [None]
  - RESTLESSNESS [None]
  - TARDIVE DYSKINESIA [None]
